FAERS Safety Report 21372155 (Version 2)
Quarter: 2023Q1

REPORT INFORMATION
  Report Type: Report from Study
  Country: CO (occurrence: CO)
  Receive Date: 20220923
  Receipt Date: 20230322
  Transmission Date: 20230417
  Serious: Yes (Hospitalization)
  Sender: FDA-Public Use
  Company Number: CO-NOVARTISPH-NVSC2020CO269422

PATIENT
  Age: 65 Year
  Sex: Female
  Weight: 56 kg

DRUGS (9)
  1. ELTROMBOPAG OLAMINE [Suspect]
     Active Substance: ELTROMBOPAG OLAMINE
     Indication: Immune thrombocytopenia
     Dosage: 50 MG, QD
     Route: 048
     Dates: start: 201810, end: 202101
  2. ELTROMBOPAG OLAMINE [Suspect]
     Active Substance: ELTROMBOPAG OLAMINE
     Dosage: 50 MG, QD
     Route: 048
  3. ELTROMBOPAG OLAMINE [Suspect]
     Active Substance: ELTROMBOPAG OLAMINE
     Dosage: 3 DOSAGE FORM, QD (25 MG TAKE AT NIGHT 3 TABLETS)
     Route: 048
  4. ELTROMBOPAG OLAMINE [Suspect]
     Active Substance: ELTROMBOPAG OLAMINE
     Dosage: 75 MG, QD (ONCE DAILY)
     Route: 048
  5. LEVOTHYROXINE [Concomitant]
     Active Substance: LEVOTHYROXINE
     Indication: Thyroid disorder
     Dosage: 50 MG, Q24H, (10 YEARS AGO)
     Route: 048
  6. LEVOTHYROXINE [Concomitant]
     Active Substance: LEVOTHYROXINE
     Indication: Hypothyroidism
  7. OMEPRAZOLE [Concomitant]
     Active Substance: OMEPRAZOLE
     Indication: Gastritis prophylaxis
     Dosage: 20 MG, Q24H,  (5 YEARS AGO)
     Route: 048
  8. ENALAPRIL [Concomitant]
     Active Substance: ENALAPRIL
     Indication: Hypertension
     Dosage: 5 MG, Q24H, (28 YEARS AGO)
     Route: 048
  9. HYDROCHLOROTHIAZIDE [Concomitant]
     Active Substance: HYDROCHLOROTHIAZIDE
     Indication: Hypertension
     Dosage: 25 MG, Q24H, (28 YEARS AGO)
     Route: 065

REACTIONS (22)
  - Platelet count decreased [Unknown]
  - Nasopharyngitis [Unknown]
  - Illness [Unknown]
  - Nasal congestion [Unknown]
  - Intermenstrual bleeding [Unknown]
  - Somnolence [Unknown]
  - Fall [Unknown]
  - Limb injury [Unknown]
  - Wound [Unknown]
  - Limb discomfort [Unknown]
  - Pain in extremity [Recovering/Resolving]
  - Pain [Unknown]
  - Fatigue [Unknown]
  - Gait disturbance [Unknown]
  - Oedema [Unknown]
  - Anxiety [Unknown]
  - Stress [Not Recovered/Not Resolved]
  - Anaemia [Not Recovered/Not Resolved]
  - Platelet count decreased [Recovered/Resolved]
  - Rash [Unknown]
  - Product dose omission issue [Unknown]
  - Product supply issue [Unknown]

NARRATIVE: CASE EVENT DATE: 20200901
